FAERS Safety Report 9992552 (Version 3)
Quarter: 2014Q2

REPORT INFORMATION
  Report Type: Spontaneous
  Country: US (occurrence: US)
  Receive Date: 20140310
  Receipt Date: 20140605
  Transmission Date: 20141212
  Serious: No
  Sender: FDA-Public Use
  Company Number: US-BAYER-2014-030697

PATIENT
  Sex: Male

DRUGS (1)
  1. KOGENATE FS [Suspect]
     Indication: PROPHYLAXIS

REACTIONS (2)
  - Wrong technique in drug usage process [None]
  - Underdose [None]
